FAERS Safety Report 10102202 (Version 2)
Quarter: 2014Q2

REPORT INFORMATION
  Report Type: Spontaneous
  Country: US (occurrence: US)
  Receive Date: 20140424
  Receipt Date: 20140430
  Transmission Date: 20141212
  Serious: No
  Sender: FDA-Public Use
  Company Number: US-PFIZER INC-2014110921

PATIENT
  Age: 51 Year
  Sex: Female

DRUGS (1)
  1. LEVOXYL [Suspect]
     Indication: AUTOIMMUNE THYROIDITIS
     Dosage: 50 UG, UNK

REACTIONS (3)
  - Reaction to drug excipients [Unknown]
  - Abdominal pain upper [Unknown]
  - Abdominal pain [Unknown]
